FAERS Safety Report 21492440 (Version 1)
Quarter: 2022Q4

REPORT INFORMATION
  Report Type: Spontaneous
  Country: GB (occurrence: GB)
  Receive Date: 20221021
  Receipt Date: 20221021
  Transmission Date: 20230113
  Serious: Yes (Hospitalization, Other)
  Sender: FDA-Public Use
  Company Number: GB-MHRA-MED-202210141055148870-FBDLP

PATIENT
  Age: 60 Year
  Sex: Male
  Weight: 71 kg

DRUGS (1)
  1. NIVOLUMAB [Suspect]
     Active Substance: NIVOLUMAB
     Indication: Oesophageal squamous cell carcinoma
     Route: 065
     Dates: start: 20211230, end: 20220825

REACTIONS (5)
  - Neutropenia [Recovering/Resolving]
  - Granulocyte count decreased [Unknown]
  - Erythroid dysplasia [Unknown]
  - Lymphocytosis [Unknown]
  - Plasmacytosis [Unknown]

NARRATIVE: CASE EVENT DATE: 20220917
